FAERS Safety Report 5729056-0 (Version None)
Quarter: 2008Q2

REPORT INFORMATION
  Report Type: 
  Country: None (occurrence: None)
  Receive Date: 20080506
  Receipt Date: 20080407
  Transmission Date: 20081010
  Serious: No
  Sender: FDA-Public Use
  Company Number: US-BAYER-200819605NA

PATIENT
  Age: 22 Year
  Sex: Female
  Weight: 64 kg

DRUGS (2)
  1. ULTRAVIST (PHARMACY BULK) [Suspect]
     Indication: COMPUTERISED TOMOGRAM ABDOMEN
     Dosage: AS USED: 125 ML
     Route: 042
     Dates: start: 20080407, end: 20080407
  2. UNSPECIFIED ORAL CONTRAST [Concomitant]
     Route: 048

REACTIONS (2)
  - SNEEZING [None]
  - URTICARIA [None]
